FAERS Safety Report 4353939-X (Version None)
Quarter: 2004Q2

REPORT INFORMATION
  Report Type: 
  Country: None (occurrence: None)
  Receive Date: 20040506
  Receipt Date: 20040202
  Transmission Date: 20050107
  Serious: No
  Sender: FDA-Public Use
  Company Number: US-GLAXOSMITHKLINE-A0496050A

PATIENT
  Age: 82 Year
  Sex: Male

DRUGS (7)
  1. AVANDAMET [Suspect]
     Dosage: 1TAB PER DAY
     Route: 048
     Dates: start: 20031201, end: 20040101
  2. ZANTAC [Concomitant]
  3. DIGITEK [Concomitant]
  4. TYLENOL (CAPLET) [Concomitant]
  5. GLYBURIDE [Concomitant]
  6. LESCOL XL [Concomitant]
  7. ASPIRIN [Concomitant]

REACTIONS (1)
  - DIZZINESS [None]
